FAERS Safety Report 20980715 (Version 1)
Quarter: 2022Q2

REPORT INFORMATION
  Report Type: Report from Study
  Country: CA (occurrence: None)
  Receive Date: 20220620
  Receipt Date: 20220620
  Transmission Date: 20220721
  Serious: Yes (Other)
  Sender: FDA-Public Use
  Company Number: CA-PFIZER INC-202200840036

PATIENT
  Age: 49 Year
  Sex: Female

DRUGS (6)
  1. METHOTREXATE [Suspect]
     Active Substance: METHOTREXATE
     Indication: Product used for unknown indication
     Route: 065
  2. ACTEMRA [Concomitant]
     Active Substance: TOCILIZUMAB
     Route: 058
  3. INFLIXIMAB [Concomitant]
     Active Substance: INFLIXIMAB
     Route: 041
  4. ORENCIA [Concomitant]
     Active Substance: ABATACEPT
     Route: 041
  5. PREDNISONE [Concomitant]
     Active Substance: PREDNISONE
     Route: 048
  6. RITUXIMAB [Concomitant]
     Active Substance: RITUXIMAB
     Route: 042

REACTIONS (8)
  - Drug ineffective [Recovered/Resolved]
  - Anaemia [Recovered/Resolved]
  - Dysstasia [Recovered/Resolved]
  - Gait disturbance [Recovered/Resolved]
  - General physical health deterioration [Recovered/Resolved]
  - Pain [Recovered/Resolved]
  - Pulmonary embolism [Recovered/Resolved]
  - Thrombosis [Recovered/Resolved]
